FAERS Safety Report 5472090-9 (Version None)
Quarter: 2007Q3

REPORT INFORMATION
  Report Type: 
  Country: None (occurrence: None)
  Receive Date: 20070928
  Receipt Date: 20070920
  Transmission Date: 20080115
  Serious: Yes (Hospitalization, Disabling, Other)
  Sender: FDA-Public Use
  Company Number: DE-PFIZER INC-2007079394

PATIENT
  Sex: Male

DRUGS (4)
  1. SORTIS [Suspect]
     Indication: BLOOD TRIGLYCERIDES INCREASED
     Route: 048
  2. BEZAFIBRATE [Concomitant]
     Dates: start: 20020806, end: 20030225
  3. ASPIRIN [Concomitant]
  4. MINIASAL [Concomitant]

REACTIONS (21)
  - BLOOD BRAIN BARRIER DEFECT [None]
  - C-REACTIVE PROTEIN INCREASED [None]
  - CIRCULATORY COLLAPSE [None]
  - CONVERSION DISORDER [None]
  - DYSARTHRIA [None]
  - FATTY ACID DEFICIENCY [None]
  - GAIT DISTURBANCE [None]
  - HEPATIC STEATOSIS [None]
  - HYPERCHOLESTEROLAEMIA [None]
  - HYPERLIPIDAEMIA [None]
  - HYPERTRIGLYCERIDAEMIA [None]
  - LOSS OF EMPLOYMENT [None]
  - MUSCULAR WEAKNESS [None]
  - NASOPHARYNGITIS [None]
  - NEURALGIA [None]
  - PERIPHERAL SENSORY NEUROPATHY [None]
  - PROTEIN TOTAL ABNORMAL [None]
  - RENAL FAILURE ACUTE [None]
  - RHABDOMYOLYSIS [None]
  - SACCADIC EYE MOVEMENT [None]
  - WOUND INFECTION [None]
